FAERS Safety Report 9289982 (Version 1)
Quarter: 2013Q2

REPORT INFORMATION
  Report Type: Spontaneous
  Country: CA (occurrence: CA)
  Receive Date: 20130515
  Receipt Date: 20130515
  Transmission Date: 20140414
  Serious: Yes (Hospitalization)
  Sender: FDA-Public Use
  Company Number: CA-ACCORD-017652

PATIENT
  Age: 68 Year
  Sex: Male

DRUGS (2)
  1. AMLODIPINE [Suspect]
  2. METFORMIN [Suspect]

REACTIONS (3)
  - Overdose [Unknown]
  - Metabolic acidosis [Recovering/Resolving]
  - Haemodynamic instability [Recovering/Resolving]
